FAERS Safety Report 5500707-9 (Version None)
Quarter: 2007Q4

REPORT INFORMATION
  Report Type: 
  Country: None (occurrence: None)
  Receive Date: 20071018
  Receipt Date: 20070129
  Transmission Date: 20080405
  Serious: Yes (Other)
  Sender: FDA-Public Use
  Company Number: 2007008582

PATIENT
  Age: 68 Year
  Sex: Male
  Weight: 74.8 kg

DRUGS (4)
  1. NEURONTIN [Suspect]
     Indication: POST HERPETIC NEURALGIA
     Dosage: 600 MG (300 MG, 2 IN 1 D)
     Dates: start: 20060506, end: 20070101
  2. GABAPENTIN [Suspect]
     Indication: POST HERPETIC NEURALGIA
     Dosage: 1800 MG (600 MG, 3 IN 1 D)
     Dates: start: 20070101
  3. ZOCOR [Concomitant]
  4. SIMVASTATIN [Concomitant]

REACTIONS (4)
  - DRUG INEFFECTIVE [None]
  - HYPERTENSION [None]
  - PAIN [None]
  - SWELLING [None]
